FAERS Safety Report 9602348 (Version 1)
Quarter: 2013Q4

REPORT INFORMATION
  Report Type: Spontaneous
  Country: US (occurrence: US)
  Receive Date: 20131007
  Receipt Date: 20131007
  Transmission Date: 20140711
  Serious: No
  Sender: FDA-Public Use
  Company Number: US-GLAXOSMITHKLINE-A1034883A

PATIENT
  Age: 41 Year
  Sex: Female

DRUGS (7)
  1. BENLYSTA [Suspect]
     Indication: SYSTEMIC LUPUS ERYTHEMATOSUS
     Route: 042
     Dates: start: 201302
  2. ZOFRAN [Concomitant]
  3. BENADRYL [Concomitant]
  4. TYLENOL [Concomitant]
  5. VOLTAREN [Concomitant]
  6. PLAQUENIL [Concomitant]
  7. PREDNISONE [Concomitant]

REACTIONS (4)
  - Pain in extremity [Recovered/Resolved]
  - Paraesthesia [Recovered/Resolved]
  - Musculoskeletal stiffness [Not Recovered/Not Resolved]
  - Infection [Unknown]
